FAERS Safety Report 4750427-3 (Version None)
Quarter: 2005Q3

REPORT INFORMATION
  Report Type: 
  Country: None (occurrence: None)
  Receive Date: 20050823
  Receipt Date: 20050815
  Transmission Date: 20060218
  Serious: Yes (Hospitalization)
  Sender: FDA-Public Use
  Company Number: JP-GILEAD-2005-0008637

PATIENT
  Age: 40 Year
  Sex: Male

DRUGS (10)
  1. HEPSERA [Suspect]
     Indication: HEPATITIS B
     Route: 048
     Dates: start: 20040607
  2. ZEFFIX [Suspect]
     Indication: HEPATITIS B
     Route: 048
     Dates: start: 20030806
  3. INTRON A [Suspect]
  4. PL GRAN. [Concomitant]
  5. GASTER [Concomitant]
  6. LENDORMIN [Concomitant]
  7. MUCOSTA [Concomitant]
  8. DOGMATYL [Concomitant]
  9. INDOMETHACIN [Concomitant]
  10. RESTAMIN [Concomitant]

REACTIONS (1)
  - LOSS OF CONSCIOUSNESS [None]
